FAERS Safety Report 7444582-4 (Version None)
Quarter: 2011Q2

REPORT INFORMATION
  Report Type: 
  Country: None (occurrence: None)
  Receive Date: 20110429
  Receipt Date: 20110426
  Transmission Date: 20111010
  Serious: Yes (Other)
  Sender: FDA-Public Use
  Company Number: BR-PFIZER INC-2011089444

PATIENT
  Age: 63 Year
  Sex: Female

DRUGS (2)
  1. LYRICA [Suspect]
     Dosage: UNK
     Route: 048
     Dates: start: 20110101, end: 20110101
  2. FLUOXETINE [Concomitant]
     Dosage: UNK

REACTIONS (5)
  - GENERALISED OEDEMA [None]
  - FEELING ABNORMAL [None]
  - APPARENT DEATH [None]
  - DIZZINESS [None]
  - HEART RATE INCREASED [None]
